FAERS Safety Report 4556392-6 (Version None)
Quarter: 2005Q1

REPORT INFORMATION
  Report Type: 
  Country: None (occurrence: None)
  Receive Date: 20050105
  Receipt Date: 20041018
  Transmission Date: 20050727
  Serious: Yes (Other)
  Sender: FDA-Public Use
  Company Number: 20041000472

PATIENT
  Age: 78 Year
  Sex: Female
  Weight: 71 kg

DRUGS (4)
  1. BREVIBLOC [Suspect]
     Indication: HEART RATE INCREASED
     Dosage: 2500 MG OTHER IV
     Route: 042
     Dates: start: 20041014, end: 20041017
  2. BREVIBLOC [Suspect]
     Indication: HYPERTENSION
     Dosage: 2500 MG OTHER IV
     Route: 042
     Dates: start: 20041014, end: 20041017
  3. BREVIBLOC [Suspect]
     Indication: HEART RATE INCREASED
  4. BREVIBLOC [Suspect]
     Indication: HYPERTENSION

REACTIONS (1)
  - SKIN NECROSIS [None]
